FAERS Safety Report 24330205 (Version 1)
Quarter: 2024Q3

REPORT INFORMATION
  Report Type: Report from Study
  Country: CA (occurrence: CA)
  Receive Date: 20240917
  Receipt Date: 20240917
  Transmission Date: 20241017
  Serious: Yes (Hospitalization)
  Sender: ABBVIE
  Company Number: CA-ABBVIE-5921872

PATIENT
  Age: 55 Year
  Sex: Female

DRUGS (1)
  1. RINVOQ [Suspect]
     Active Substance: UPADACITINIB
     Indication: Psoriatic arthropathy
     Route: 048
     Dates: start: 20220406

REACTIONS (6)
  - Syncope [Recovering/Resolving]
  - Pain [Unknown]
  - Limb injury [Recovering/Resolving]
  - Head injury [Recovering/Resolving]
  - Clostridium difficile infection [Unknown]
  - Fibula fracture [Recovering/Resolving]

NARRATIVE: CASE EVENT DATE: 20240901
